FAERS Safety Report 6426784-9 (Version None)
Quarter: 2009Q4

REPORT INFORMATION
  Report Type: 
  Country: None (occurrence: None)
  Receive Date: 20091030
  Receipt Date: 20091016
  Transmission Date: 20100525
  Serious: Yes (Hospitalization)
  Sender: FDA-Public Use
  Company Number: 2009AC000056

PATIENT
  Age: 62 Year
  Sex: Female

DRUGS (32)
  1. DIGOXIN [Suspect]
     Dosage: 0.25 MG; QD; PO
     Route: 048
  2. ALDACTONE [Concomitant]
  3. LIPITOR [Concomitant]
  4. NEXIUM [Concomitant]
  5. COLACE [Concomitant]
  6. FIBERCON [Concomitant]
  7. VITAMIN E [Concomitant]
  8. CALCIUM [Concomitant]
  9. ALLEGRA [Concomitant]
  10. ZOLOFT [Concomitant]
  11. ROBAXIN [Concomitant]
  12. SYNTHROID [Concomitant]
  13. TOPROL-XL [Concomitant]
  14. FISH OIL [Concomitant]
  15. METFORMIN HCL [Concomitant]
  16. KLOR-CON [Concomitant]
  17. FUROSEMIDE [Concomitant]
  18. DIAZEPAM [Concomitant]
  19. LYRICA [Concomitant]
  20. CELEBREX [Concomitant]
  21. TRAMDOL [Concomitant]
  22. SERTRALINE HCL [Concomitant]
  23. TALWIN [Concomitant]
  24. REPLIVA [Concomitant]
  25. VERAMYST SPRAY [Concomitant]
  26. K-DUR [Concomitant]
  27. PACERONE [Concomitant]
  28. PLAVIX [Concomitant]
  29. TRAZODONE HCL [Concomitant]
  30. VITAMIN B COMPLEX CAP [Concomitant]
  31. COUMADIN [Concomitant]
  32. ROCEPHIN [Concomitant]

REACTIONS (28)
  - ABDOMINAL PAIN [None]
  - ANXIETY [None]
  - ATRIAL FIBRILLATION [None]
  - BLOOD CHOLESTEROL INCREASED [None]
  - BLOOD URINE PRESENT [None]
  - CATARACT [None]
  - CHEST PAIN [None]
  - DEHYDRATION [None]
  - DRUG HYPERSENSITIVITY [None]
  - ELECTROLYTE IMBALANCE [None]
  - FATIGUE [None]
  - FEAR [None]
  - GASTROENTERITIS [None]
  - HAEMATURIA [None]
  - HEART RATE DECREASED [None]
  - HYPOAESTHESIA [None]
  - HYPOKALAEMIA [None]
  - HYPOMAGNESAEMIA [None]
  - INTERNATIONAL NORMALISED RATIO INCREASED [None]
  - ISCHAEMIA [None]
  - MULTIPLE INJURIES [None]
  - NAUSEA [None]
  - NEPHROLITHIASIS [None]
  - PARAESTHESIA [None]
  - SURGERY [None]
  - URINARY TRACT INFECTION [None]
  - VITREOUS FLOATERS [None]
  - VOMITING [None]
